FAERS Safety Report 17115666 (Version 3)
Quarter: 2020Q1

REPORT INFORMATION
  Report Type: Report from Study
  Country: IT (occurrence: IT)
  Receive Date: 20191205
  Receipt Date: 20200122
  Transmission Date: 20200409
  Serious: Yes (Other)
  Sender: FDA-Public Use
  Company Number: NVSC2019IT058090

PATIENT
  Sex: Female

DRUGS (11)
  1. TAFINLAR [Suspect]
     Active Substance: DABRAFENIB MESYLATE
     Dosage: 300 OT
     Route: 065
     Dates: start: 20190922, end: 201910
  2. TRAMETINIB [Suspect]
     Active Substance: TRAMETINIB
     Indication: MALIGNANT MELANOMA
     Dosage: 2 DF
     Route: 065
     Dates: start: 20190219, end: 20190224
  3. TAFINLAR [Suspect]
     Active Substance: DABRAFENIB MESYLATE
     Indication: MALIGNANT MELANOMA
     Dosage: 300 OT
     Route: 065
     Dates: start: 20190211, end: 20190224
  4. TRAMETINIB [Suspect]
     Active Substance: TRAMETINIB
     Dosage: 2 DF
     Route: 065
     Dates: start: 20190922, end: 201910
  5. TRAMETINIB [Suspect]
     Active Substance: TRAMETINIB
     Dosage: 2 DF
     Route: 065
     Dates: start: 201910
  6. KEPPRA [Concomitant]
     Active Substance: LEVETIRACETAM
     Indication: METASTASES TO CENTRAL NERVOUS SYSTEM
     Dosage: 500 OT
     Route: 048
     Dates: start: 20191030
  7. SOLDESAM [Concomitant]
     Active Substance: DEXAMETHASONE
     Indication: METASTASES TO CENTRAL NERVOUS SYSTEM
     Dosage: 8 OT
     Route: 048
     Dates: start: 20190204
  8. SOLDESAM [Concomitant]
     Active Substance: DEXAMETHASONE
     Dosage: 64 OT
     Route: 048
     Dates: start: 20190906
  9. TAFINLAR [Suspect]
     Active Substance: DABRAFENIB MESYLATE
     Dosage: 300 OT
     Route: 065
     Dates: start: 20190227, end: 20190905
  10. TRAMETINIB [Suspect]
     Active Substance: TRAMETINIB
     Dosage: 2 DF
     Route: 065
     Dates: start: 20190227, end: 20190905
  11. TAFINLAR [Suspect]
     Active Substance: DABRAFENIB MESYLATE
     Dosage: 300 OT
     Route: 065
     Dates: start: 201910

REACTIONS (10)
  - Asthenia [Recovered/Resolved with Sequelae]
  - Pyrexia [Recovered/Resolved]
  - Rash [Recovered/Resolved]
  - Pyrexia [Recovered/Resolved]
  - Neoplasm [Not Recovered/Not Resolved]
  - Dermatitis [Recovered/Resolved]
  - Asthenia [Recovering/Resolving]
  - Haemorrhoids [Recovered/Resolved]
  - Electrocardiogram QT prolonged [Recovered/Resolved]
  - Pruritus [Recovered/Resolved]

NARRATIVE: CASE EVENT DATE: 20190219
